FAERS Safety Report 13351677 (Version 1)
Quarter: 2017Q1

REPORT INFORMATION
  Report Type: Spontaneous
  Country: US (occurrence: US)
  Receive Date: 20170320
  Receipt Date: 20170320
  Transmission Date: 20170429
  Serious: Yes (Other)
  Sender: FDA-Public Use
  Company Number: US-PFIZER INC-2017109462

PATIENT
  Sex: Male

DRUGS (6)
  1. LIPITOR [Suspect]
     Active Substance: ATORVASTATIN CALCIUM
     Dosage: 80 MG, UNK
  2. EFFIENT [Suspect]
     Active Substance: PRASUGREL HYDROCHLORIDE
     Dosage: 10 MG, UNK
  3. XARELTO [Suspect]
     Active Substance: RIVAROXABAN
     Dosage: 10 MG, UNK
  4. LISINOPRIL. [Suspect]
     Active Substance: LISINOPRIL
     Dosage: 10 MG, UNK
  5. METOPROLOL SUCCINATE. [Suspect]
     Active Substance: METOPROLOL SUCCINATE
     Dosage: 50 MG, UNK
  6. ASPIRIN. [Suspect]
     Active Substance: ASPIRIN
     Dosage: 82 MG, UNK

REACTIONS (4)
  - Abnormal behaviour [Unknown]
  - Epistaxis [Unknown]
  - Myocardial infarction [Unknown]
  - Dizziness [Unknown]
